FAERS Safety Report 8160670-1 (Version None)
Quarter: 2012Q1

REPORT INFORMATION
  Report Type: 
  Country: None (occurrence: None)
  Receive Date: 20120223
  Receipt Date: 20120221
  Transmission Date: 20120608
  Serious: No
  Sender: FDA-Public Use
  Company Number: US-PFIZER INC-2012045893

PATIENT
  Sex: Male

DRUGS (2)
  1. CHILDREN'S ADVIL [Suspect]
     Indication: PYREXIA
     Dosage: UNK, 3X/DAY
     Route: 048
     Dates: start: 20120218, end: 20120219
  2. CEPHALEXIN [Concomitant]
     Dosage: UNK

REACTIONS (1)
  - VOMITING [None]
